FAERS Safety Report 5519173-2 (Version None)
Quarter: 2007Q4

REPORT INFORMATION
  Report Type: 
  Country: None (occurrence: None)
  Receive Date: 20071116
  Receipt Date: 20071113
  Transmission Date: 20080405
  Serious: Yes (Life-Threatening, Hospitalization, Disabling, Other)
  Sender: FDA-Public Use
  Company Number: CA-BAYER-200514411GDS

PATIENT
  Age: 50 Year
  Sex: Male
  Weight: 92 kg

DRUGS (25)
  1. PLACEBO [Suspect]
     Indication: ERECTILE DYSFUNCTION
     Route: 048
     Dates: start: 20051110
  2. CIPRO [Suspect]
     Indication: URINARY TRACT INFECTION
     Route: 065
     Dates: start: 20051121, end: 20051121
  3. ADVIL LIQUI-GELS [Concomitant]
     Indication: PROCEDURAL PAIN
     Route: 048
     Dates: start: 20051024
  4. TYLENOL W/ CODEINE NO. 3 [Concomitant]
     Indication: PROCEDURAL PAIN
     Route: 048
     Dates: start: 20051023, end: 20051031
  5. HEPARIN [Concomitant]
     Indication: PROPHYLAXIS
     Route: 058
     Dates: start: 20051124, end: 20051130
  6. RANITIDINE [Concomitant]
     Indication: VOMITING
     Route: 042
     Dates: start: 20051124
  7. PERCOCET [Concomitant]
     Indication: PAIN
     Route: 048
     Dates: start: 20051121, end: 20051121
  8. LABETALOL [Concomitant]
     Indication: HYPERTENSION
     Route: 042
     Dates: start: 20051124, end: 20051125
  9. METOPROLOL TARTRATE [Concomitant]
     Indication: HYPERTENSION
     Route: 048
     Dates: start: 20051126, end: 20051130
  10. METOPROLOL TARTRATE [Concomitant]
     Route: 048
     Dates: start: 20051124, end: 20051124
  11. METOPROLOL TARTRATE [Concomitant]
     Route: 048
     Dates: start: 20051125, end: 20051125
  12. HYDRALAZINE HCL [Concomitant]
     Indication: HYPERTENSION
     Route: 048
     Dates: start: 20051124, end: 20051130
  13. ZANTAC [Concomitant]
     Indication: VOMITING
     Route: 042
     Dates: start: 20051124, end: 20051125
  14. ZANTAC [Concomitant]
     Route: 048
     Dates: start: 20051126, end: 20051130
  15. ANCEF [Concomitant]
     Indication: UNEVALUABLE EVENT
     Route: 042
     Dates: start: 20051124, end: 20051128
  16. ATIVAN [Concomitant]
     Indication: UNEVALUABLE EVENT
     Route: 058
     Dates: start: 20051126, end: 20051126
  17. ATIVAN [Concomitant]
     Route: 058
     Dates: start: 20051129, end: 20051129
  18. ATIVAN [Concomitant]
     Route: 058
     Dates: start: 20051121, end: 20051121
  19. NORVASC [Concomitant]
     Indication: UNEVALUABLE EVENT
     Route: 048
     Dates: start: 20051126, end: 20051129
  20. SERAX [Concomitant]
     Indication: UNEVALUABLE EVENT
     Route: 048
     Dates: start: 20051128, end: 20051128
  21. STEMATIL (PROCHLORPERAZINE) [Concomitant]
     Indication: UNEVALUABLE EVENT
     Route: 042
     Dates: start: 20051128, end: 20051129
  22. RESTORIL [Concomitant]
     Indication: UNEVALUABLE EVENT
     Route: 048
     Dates: start: 20051129, end: 20051129
  23. GRAVOL TAB [Concomitant]
     Indication: VOMITING
     Route: 042
     Dates: start: 20051122, end: 20051122
  24. FENTANYL [Concomitant]
     Indication: PAIN
     Route: 042
     Dates: start: 20051122, end: 20051122
  25. CIPRO [Concomitant]
     Route: 042
     Dates: start: 20051122, end: 20051122

REACTIONS (2)
  - RENAL FAILURE ACUTE [None]
  - URINARY TRACT INFECTION [None]
